FAERS Safety Report 16575319 (Version 2)
Quarter: 2019Q3

REPORT INFORMATION
  Report Type: Report from Study
  Country: None (occurrence: US)
  Receive Date: 20190716
  Receipt Date: 20190727
  Transmission Date: 20191004
  Serious: Yes (Hospitalization, Other)
  Sender: FDA-Public Use
  Company Number: US-ABBVIE-19K-163-2853509-00

PATIENT
  Age: 53 Year
  Sex: Female

DRUGS (1)
  1. HUMIRA [Suspect]
     Active Substance: ADALIMUMAB
     Indication: PSORIASIS
     Route: 058
     Dates: start: 20190307, end: 20190716

REACTIONS (9)
  - Cerebral haemorrhage [Unknown]
  - Psoriasis [Unknown]
  - Dehydration [Unknown]
  - Face injury [Unknown]
  - Haematemesis [Unknown]
  - Syncope [Unknown]
  - Diarrhoea [Unknown]
  - Ulcer haemorrhage [Unknown]
  - Drug ineffective [Unknown]

NARRATIVE: CASE EVENT DATE: 2019
